FAERS Safety Report 24748939 (Version 1)
Quarter: 2024Q4

REPORT INFORMATION
  Report Type: Report from Study
  Country: CH (occurrence: CH)
  Receive Date: 20241218
  Receipt Date: 20241218
  Transmission Date: 20250114
  Serious: Yes (Hospitalization)
  Sender: ABBVIE
  Company Number: CH-ABBVIE-5880625

PATIENT
  Age: 54 Year
  Sex: Male
  Weight: 62 kg

DRUGS (10)
  1. RISANKIZUMAB [Suspect]
     Active Substance: RISANKIZUMAB
     Indication: Crohn^s disease
     Route: 058
     Dates: start: 20240620
  2. RISANKIZUMAB [Suspect]
     Active Substance: RISANKIZUMAB
     Indication: Crohn^s disease
     Route: 042
     Dates: start: 20240318, end: 20240619
  3. BUDESONIDE [Concomitant]
     Active Substance: BUDESONIDE
     Indication: Crohn^s disease
     Route: 048
     Dates: start: 20240205
  4. POTASSIUM BICARBONATE\POTASSIUM CITRATE [Concomitant]
     Active Substance: POTASSIUM BICARBONATE\POTASSIUM CITRATE
     Indication: Blood potassium decreased
     Route: 048
     Dates: start: 20240308, end: 20240920
  5. HYDROCORTISONE [Concomitant]
     Active Substance: HYDROCORTISONE
     Indication: Adrenal insufficiency
     Route: 048
     Dates: start: 20240305
  6. DAPSONE [Concomitant]
     Active Substance: DAPSONE
     Indication: Skin disorder
     Route: 048
     Dates: start: 2023
  7. CHOLECALCIFEROL [Concomitant]
     Active Substance: CHOLECALCIFEROL
     Indication: Prophylaxis
     Route: 048
     Dates: start: 2023
  8. CALCIUM\CHOLECALCIFEROL [Concomitant]
     Active Substance: CALCIUM\CHOLECALCIFEROL
     Indication: Prophylaxis
     Dosage: 1 CAPSULE
     Route: 048
     Dates: start: 202401
  9. ELIQUIS [Concomitant]
     Active Substance: APIXABAN
     Indication: Anticoagulant therapy
     Route: 048
     Dates: start: 20240320, end: 20240926
  10. ELIQUIS [Concomitant]
     Active Substance: APIXABAN
     Indication: Anticoagulant therapy
     Route: 048
     Dates: start: 20240927

REACTIONS (7)
  - Surgery [Recovered/Resolved]
  - Pneumonia [Recovered/Resolved]
  - Anal injury [Recovered/Resolved]
  - Proctectomy [Recovered/Resolved]
  - Wound closure [Recovered/Resolved]
  - Micrographic skin surgery [Recovered/Resolved]
  - Anogenital dysplasia [Recovered/Resolved]

NARRATIVE: CASE EVENT DATE: 20240701
